FAERS Safety Report 4427800-6 (Version None)
Quarter: 2004Q3

REPORT INFORMATION
  Report Type: 
  Country: None (occurrence: None)
  Receive Date: 20040812
  Receipt Date: 20040731
  Transmission Date: 20050211
  Serious: Yes (Life-Threatening, Other)
  Sender: FDA-Public Use
  Company Number: 2004037679

PATIENT
  Age: 42 Year
  Sex: Female
  Weight: 58.9676 kg

DRUGS (6)
  1. ZITHROMAX [Suspect]
     Indication: LYME DISEASE
     Dosage: 500 MG (500 MG, 1 IN 1 D), INTRAVENOUS
     Route: 042
     Dates: start: 20040522, end: 20040601
  2. BENADRYL [Suspect]
     Indication: ANGIONEUROTIC OEDEMA
     Dosage: ORAL
     Route: 048
     Dates: start: 20040528
  3. TRANSFER FACTOR (TRANSFER FACTOR) [Concomitant]
  4. CELECOXIB (CELECOXIB) [Concomitant]
  5. PANTOPRAZOLE (PANTOPRAZOLE) [Concomitant]
  6. MODAFINIL [Concomitant]

REACTIONS (3)
  - ANGIONEUROTIC OEDEMA [None]
  - DYSPNOEA [None]
  - PAIN [None]
